FAERS Safety Report 4999249-9 (Version None)
Quarter: 2006Q2

REPORT INFORMATION
  Report Type: 
  Country: None (occurrence: None)
  Receive Date: 20060509
  Receipt Date: 20060509
  Transmission Date: 20061013
  Serious: Yes (Hospitalization, Other)
  Sender: FDA-Public Use
  Company Number: None

PATIENT
  Sex: Female
  Weight: 62.7 kg

DRUGS (6)
  1. CISPLATIN [Suspect]
     Indication: SQUAMOUS CELL CARCINOMA OF THE CERVIX
     Dosage: 81 MG
     Dates: start: 20050805, end: 20050805
  2. NAVELBINE [Suspect]
     Dosage: 97.2 MG
     Dates: start: 20050805, end: 20050812
  3. ADVIL [Concomitant]
  4. OXYCONTIN [Concomitant]
  5. VICODIN [Concomitant]
  6. ZOFRAN [Concomitant]

REACTIONS (12)
  - BACTERIAL INFECTION [None]
  - CHILLS [None]
  - CITROBACTER INFECTION [None]
  - CULTURE URINE POSITIVE [None]
  - ENTEROCOCCAL INFECTION [None]
  - FEBRILE NEUTROPENIA [None]
  - HAEMATOCRIT DECREASED [None]
  - NAUSEA [None]
  - ORAL INTAKE REDUCED [None]
  - PLATELET COUNT INCREASED [None]
  - VOMITING [None]
  - WHITE BLOOD CELL COUNT DECREASED [None]
